FAERS Safety Report 25552401 (Version 4)
Quarter: 2025Q3

REPORT INFORMATION
  Report Type: Report from Study
  Country: CA (occurrence: CA)
  Receive Date: 20250715
  Receipt Date: 20250820
  Transmission Date: 20251020
  Serious: Yes (Other)
  Sender: JOHNSON AND JOHNSON
  Company Number: CA-JNJFOC-20250708579

PATIENT
  Sex: Female

DRUGS (4)
  1. USTEKINUMAB [Suspect]
     Active Substance: USTEKINUMAB
     Indication: Colitis ulcerative
     Route: 058
  2. USTEKINUMAB [Suspect]
     Active Substance: USTEKINUMAB
  3. USTEKINUMAB [Suspect]
     Active Substance: USTEKINUMAB
     Indication: Colitis ulcerative
     Route: 058
  4. USTEKINUMAB [Suspect]
     Active Substance: USTEKINUMAB

REACTIONS (4)
  - Colitis ulcerative [Unknown]
  - Needle issue [Unknown]
  - Injection site pain [Unknown]
  - Device issue [Unknown]
